FAERS Safety Report 24218266 (Version 2)
Quarter: 2024Q3

REPORT INFORMATION
  Report Type: Report from Study
  Country: DE (occurrence: DE)
  Receive Date: 20240816
  Receipt Date: 20240927
  Transmission Date: 20241017
  Serious: Yes (Death, Other)
  Sender: ABBVIE
  Company Number: DE-ABBVIE-5881064

PATIENT
  Age: 59 Year
  Sex: Male

DRUGS (2)
  1. CARBIDOPA\LEVODOPA [Suspect]
     Active Substance: CARBIDOPA\LEVODOPA
     Indication: Parkinson^s disease
     Dosage: MD: 8.0 ML; CRD: 3.4 ML/H; CRN: 3.4 ML/H; ED: 1.5 ML
     Route: 050
     Dates: start: 20240603
  2. CARBIDOPA\LEVODOPA [Suspect]
     Active Substance: CARBIDOPA\LEVODOPA

REACTIONS (3)
  - Parkinson^s disease [Fatal]
  - General physical health deterioration [Not Recovered/Not Resolved]
  - Palliative care [Unknown]

NARRATIVE: CASE EVENT DATE: 20240101
